FAERS Safety Report 7881206-6 (Version None)
Quarter: 2011Q4

REPORT INFORMATION
  Report Type: 
  Country: None (occurrence: None)
  Receive Date: 20111101
  Receipt Date: 20110606
  Transmission Date: 20120403
  Serious: No
  Sender: FDA-Public Use
  Company Number: US-AMGEN-USASP2011020303

PATIENT
  Age: 73 Year
  Sex: Female

DRUGS (1)
  1. ENBREL [Suspect]
     Indication: JUVENILE ARTHRITIS
     Dosage: 50 MG, QWK
     Dates: start: 20050315

REACTIONS (8)
  - BACK PAIN [None]
  - ANIMAL SCRATCH [None]
  - OEDEMA PERIPHERAL [None]
  - FOOT DEFORMITY [None]
  - FALL [None]
  - ERYTHEMA [None]
  - SKIN HYPERTROPHY [None]
  - LOCALISED INFECTION [None]
